FAERS Safety Report 13544450 (Version 11)
Quarter: 2018Q3

REPORT INFORMATION
  Report Type: Spontaneous
  Country: JP (occurrence: JP)
  Receive Date: 20170515
  Receipt Date: 20180709
  Transmission Date: 20181010
  Serious: Yes (Other)
  Sender: FDA-Public Use
  Company Number: JP-ROCHE-1933919

PATIENT
  Age: 68 Year
  Sex: Female

DRUGS (3)
  1. PROGRAF [Concomitant]
     Active Substance: TACROLIMUS\TACROLIMUS ANHYDROUS
     Indication: DERMATOMYOSITIS
     Route: 048
  2. RITUXAN [Suspect]
     Active Substance: RITUXIMAB
     Indication: DERMATOMYOSITIS
     Dosage: 10MG/ML
     Route: 041
     Dates: start: 201611, end: 201611
  3. PREDONINE [Concomitant]
     Active Substance: PREDNISOLONE
     Indication: DERMATOMYOSITIS
     Route: 048

REACTIONS (12)
  - Psychiatric symptom [Unknown]
  - Hypoaesthesia [Unknown]
  - Tremor [Unknown]
  - Skin wrinkling [Unknown]
  - Depersonalisation/derealisation disorder [Unknown]
  - Pain [Not Recovered/Not Resolved]
  - Gait inability [Unknown]
  - Suicidal ideation [Unknown]
  - Paraesthesia oral [Unknown]
  - Bone disorder [Unknown]
  - Headache [Not Recovered/Not Resolved]
  - Dysaesthesia [Not Recovered/Not Resolved]
